FAERS Safety Report 22368907 (Version 3)
Quarter: 2023Q2

REPORT INFORMATION
  Report Type: Spontaneous
  Country: US (occurrence: US)
  Receive Date: 20230525
  Receipt Date: 20230627
  Transmission Date: 20230722
  Serious: Yes (Other)
  Sender: FDA-Public Use
  Company Number: US-BAUSCHBL-2023BNL004379

PATIENT
  Age: 81 Year
  Sex: Female

DRUGS (2)
  1. WATER [Suspect]
     Active Substance: WATER
     Indication: Product used for unknown indication
     Dosage: EYE WASH ONCE WHEN NEEDED TO WASH THE EYES
     Route: 047
  2. LEVOXYL [Concomitant]
     Active Substance: LEVOTHYROXINE SODIUM
     Indication: Product used for unknown indication
     Route: 065

REACTIONS (6)
  - Eye pain [Recovered/Resolved]
  - Eye irritation [Recovered/Resolved]
  - Ocular hyperaemia [Recovered/Resolved]
  - Iris disorder [Recovered/Resolved]
  - Visual impairment [Recovered/Resolved]
  - Accidental exposure to product [Unknown]

NARRATIVE: CASE EVENT DATE: 20230513
